FAERS Safety Report 6238847-1 (Version None)
Quarter: 2009Q2

REPORT INFORMATION
  Report Type: 
  Country: None (occurrence: None)
  Receive Date: 20090617
  Receipt Date: 20090617
  Transmission Date: 20091009
  Serious: Yes (Other)
  Sender: FDA-Public Use
  Company Number: None

PATIENT
  Age: 39 Year
  Sex: Male
  Weight: 77.1115 kg

DRUGS (1)
  1. ASTEPRO NASAL SPRAY 137 MCG PER SPRAY MEDA PHARMACEUTICALS [Suspect]
     Dosage: 2 SPRAYS IN EACH NOSTRIL TWICE A DAY NASAL
     Route: 045
     Dates: start: 20090516, end: 20090522

REACTIONS (4)
  - LEUKOPLAKIA [None]
  - ORAL DISCOMFORT [None]
  - ORAL PAIN [None]
  - STOMATITIS [None]
